FAERS Safety Report 11182839 (Version 2)
Quarter: 2015Q3

REPORT INFORMATION
  Report Type: Spontaneous
  Country: US (occurrence: US)
  Receive Date: 20150611
  Receipt Date: 20150707
  Transmission Date: 20151125
  Serious: Yes (Death, Hospitalization, Other)
  Sender: FDA-Public Use
  Company Number: US-ASTRAZENECA-2014SE24316

PATIENT
  Age: 20633 Day
  Sex: Male

DRUGS (32)
  1. CYPROHEPTADINE HCL [Concomitant]
     Active Substance: CYPROHEPTADINE HYDROCHLORIDE
     Dates: start: 20110718
  2. RELPAX [Concomitant]
     Active Substance: ELETRIPTAN HYDROBROMIDE
     Dates: start: 20070719
  3. DILAUDID [Concomitant]
     Active Substance: HYDROMORPHONE HYDROCHLORIDE
     Dosage: 2 MG/ML, EVERY FOUR HOURS
     Dates: start: 20110823
  4. NEXIUM [Concomitant]
     Active Substance: ESOMEPRAZOLE MAGNESIUM
     Dosage: 40 MG/ 5 ML, DAILY
     Dates: start: 20110823
  5. BYETTA [Suspect]
     Active Substance: EXENATIDE
     Dosage: UNK
     Route: 065
     Dates: start: 20070419, end: 20101202
  6. BYETTA [Suspect]
     Active Substance: EXENATIDE
     Dosage: 10 MCG/0.04ML
     Route: 058
     Dates: start: 20110719
  7. BENADRYL [Concomitant]
     Active Substance: DIPHENHYDRAMINE HYDROCHLORIDE
  8. DORIPENEM [Concomitant]
     Active Substance: DORIPENEM
     Dates: start: 20110823
  9. HEPARIN [Concomitant]
     Active Substance: HEPARIN SODIUM
     Dosage: 5000 UNITS/ ML, EVERY EIGHT HOURS
     Route: 058
     Dates: start: 20110823
  10. BYETTA [Suspect]
     Active Substance: EXENATIDE
     Dosage: 5 MCG/.02ML
     Route: 058
     Dates: start: 20070419, end: 20080515
  11. AZITHROMYCIN [Concomitant]
     Active Substance: AZITHROMYCIN ANHYDROUS
     Route: 065
  12. DIFLUCAN [Concomitant]
     Active Substance: FLUCONAZOLE
     Dates: start: 20110823
  13. ZOFRAN [Concomitant]
     Active Substance: ONDANSETRON HYDROCHLORIDE
     Dates: start: 20110823
  14. METRONIDAZOLE. [Concomitant]
     Active Substance: METRONIDAZOLE
     Dosage: 500 MG, 100 ML, 200 ML/HR
     Dates: start: 20110823
  15. BUPROPION HCL [Concomitant]
     Active Substance: BUPROPION HYDROCHLORIDE
     Dates: start: 20061019
  16. GEMFIBROZIL. [Concomitant]
     Active Substance: GEMFIBROZIL
     Dates: start: 20050811
  17. ATENOLOL. [Concomitant]
     Active Substance: ATENOLOL
  18. VERSED [Concomitant]
     Active Substance: MIDAZOLAM HYDROCHLORIDE
     Dates: start: 20110823
  19. COLACE [Concomitant]
     Active Substance: DOCUSATE SODIUM
     Dates: start: 20110823
  20. ATIVAN [Concomitant]
     Active Substance: LORAZEPAM
     Dosage: 2 MG/ML, EVERY SIX HOURS
     Dates: start: 20110823
  21. PAROXETINE HCL/ PAXIL [Concomitant]
     Dates: start: 20050512
  22. BYETTA [Suspect]
     Active Substance: EXENATIDE
     Dosage: 10 MCG/0.04ML
     Route: 058
     Dates: start: 20080515
  23. IMITREX [Concomitant]
     Active Substance: SUMATRIPTAN\SUMATRIPTAN SUCCINATE
     Dates: start: 20050412
  24. CIALIS [Concomitant]
     Active Substance: TADALAFIL
     Route: 048
     Dates: start: 20110111
  25. ZOLPIDEM [Concomitant]
     Active Substance: ZOLPIDEM\ZOLPIDEM TARTRATE
     Route: 048
     Dates: start: 20110718
  26. ADDERALL [Concomitant]
     Active Substance: AMPHETAMINE ASPARTATE\AMPHETAMINE SULFATE\DEXTROAMPHETAMINE SACCHARATE\DEXTROAMPHETAMINE SULFATE
  27. VALIUM [Concomitant]
     Active Substance: DIAZEPAM
  28. METFORMIN HCL [Concomitant]
     Active Substance: METFORMIN HYDROCHLORIDE
     Route: 065
  29. METOPROLOL [Concomitant]
     Active Substance: METOPROLOL
     Dates: start: 20110823
  30. OCTREOTIDE. [Concomitant]
     Active Substance: OCTREOTIDE
     Route: 058
     Dates: start: 20110823
  31. PRILOSEC [Concomitant]
     Active Substance: OMEPRAZOLE MAGNESIUM
     Dates: start: 20110823
  32. CHLOROQUINE PHOSPHATE. [Concomitant]
     Active Substance: CHLOROQUINE PHOSPHATE
     Route: 048
     Dates: start: 20100618

REACTIONS (4)
  - Adenocarcinoma pancreas [Fatal]
  - Metastases to lymph nodes [Unknown]
  - Hepatobiliary cancer [Unknown]
  - Jaundice cholestatic [Unknown]

NARRATIVE: CASE EVENT DATE: 20110721
